FAERS Safety Report 18500038 (Version 1)
Quarter: 2020Q4

REPORT INFORMATION
  Report Type: Spontaneous
  Country: CA (occurrence: CA)
  Receive Date: 20201113
  Receipt Date: 20201113
  Transmission Date: 20210114
  Serious: Yes (Death, Hospitalization, Other)
  Sender: FDA-Public Use
  Company Number: CA-009507513-2011CAN005042

PATIENT
  Age: 60 Year
  Sex: Female

DRUGS (6)
  1. KEYTRUDA [Suspect]
     Active Substance: PEMBROLIZUMAB
     Dosage: CYCLE 2, EVERY 3 WEEKS (Q3W)
     Dates: start: 20200928
  2. CARBOPLATIN. [Suspect]
     Active Substance: CARBOPLATIN
     Indication: NON-SMALL CELL LUNG CANCER STAGE IV
     Dosage: CYCLE 1, EVERY 3 WEEKS (Q3W)
     Dates: start: 20200831
  3. KEYTRUDA [Suspect]
     Active Substance: PEMBROLIZUMAB
     Indication: NON-SMALL CELL LUNG CANCER STAGE IV
     Dosage: CYCLE 1, EVERY 3 WEEKS (Q3W)
     Dates: start: 20200831
  4. TAXOL [Suspect]
     Active Substance: PACLITAXEL
     Indication: NON-SMALL CELL LUNG CANCER STAGE IV
     Dosage: CYCLE 1, EVERY 3 WEEKS (Q3W)
     Dates: start: 20200831
  5. TAXOL [Suspect]
     Active Substance: PACLITAXEL
     Dosage: CYCLE 2, EVERY 3 WEEKS (Q3W)
     Dates: start: 20200928
  6. CARBOPLATIN. [Suspect]
     Active Substance: CARBOPLATIN
     Dosage: CYCLE 2, EVERY 3 WEEKS (Q3W)
     Dates: start: 20200928

REACTIONS (5)
  - Respiratory tract infection [Unknown]
  - Malignant neoplasm progression [Fatal]
  - Inappropriate schedule of product administration [Unknown]
  - Deep vein thrombosis [Unknown]
  - Stevens-Johnson syndrome [Fatal]

NARRATIVE: CASE EVENT DATE: 2020
